FAERS Safety Report 22071651 (Version 1)
Quarter: 2023Q1

REPORT INFORMATION
  Report Type: Spontaneous
  Country: FR (occurrence: FR)
  Receive Date: 20230307
  Receipt Date: 20230307
  Transmission Date: 20230417
  Serious: Yes (Hospitalization)
  Sender: FDA-Public Use
  Company Number: None

PATIENT
  Age: 32 Year
  Sex: Male
  Weight: 73.5 kg

DRUGS (1)
  1. NEORAL [Suspect]
     Active Substance: CYCLOSPORINE
     Indication: Renal transplant
     Dosage: 675 MG, QD (225 MG X 3 A ADAPTER EN FONCTION DES DOSAGES SERIQUES)
     Route: 048
     Dates: start: 20211224, end: 20220117

REACTIONS (1)
  - Acute kidney injury [Recovered/Resolved]

NARRATIVE: CASE EVENT DATE: 20220110
